FAERS Safety Report 8988502 (Version 1)
Quarter: 2012Q4

REPORT INFORMATION
  Report Type: Spontaneous
  Country: US (occurrence: None)
  Receive Date: 20121224
  Receipt Date: 20121224
  Transmission Date: 20130627
  Serious: Yes (Hospitalization)
  Sender: FDA-Public Use
  Company Number: None

PATIENT
  Age: 76 Year
  Sex: Male
  Weight: 85 kg

DRUGS (9)
  1. WARFARIN [Suspect]
     Indication: ATRIAL FIBRILLATION
     Route: 048
  2. CLOPIDOGREL [Suspect]
     Indication: CORONARY STENT PLACEMENT
  3. ASPIRIN [Suspect]
  4. AMIODARONE [Concomitant]
  5. CARVEDILOL [Concomitant]
  6. LISINOPRIL [Concomitant]
  7. FUROSEMIDE [Concomitant]
  8. LORAZEPAM [Concomitant]
  9. SIMVASTATIN [Concomitant]

REACTIONS (2)
  - Intraventricular haemorrhage [None]
  - Injury [None]
